FAERS Safety Report 4884329-9 (Version None)
Quarter: 2005Q4

REPORT INFORMATION
  Report Type: 
  Country: None (occurrence: None)
  Receive Date: 20051201
  Receipt Date: 20050825
  Transmission Date: 20060501
  Serious: No
  Sender: FDA-Public Use
  Company Number: 2005PV001565

PATIENT
  Age: 53 Year
  Sex: Male

DRUGS (1)
  1. BYETTA [Suspect]
     Indication: DIABETES MELLITUS NON-INSULIN-DEPENDENT
     Dosage: 5 MCG; UNKNOWN; SC
     Route: 058
     Dates: start: 20050823

REACTIONS (3)
  - ABNORMAL SENSATION IN EYE [None]
  - BLOOD GLUCOSE INCREASED [None]
  - SENSATION OF PRESSURE [None]
